FAERS Safety Report 5110083-1 (Version None)
Quarter: 2006Q3

REPORT INFORMATION
  Report Type: 
  Country: None (occurrence: None)
  Receive Date: 20060921
  Receipt Date: 20060911
  Transmission Date: 20061208
  Serious: Yes (Death)
  Sender: FDA-Public Use
  Company Number: PHBS2006YU13756

PATIENT
  Age: 35 Year

DRUGS (2)
  1. METOPROLOL [Suspect]
     Route: 048
  2. ROCURONIUM BROMIDE [Suspect]
     Route: 042

REACTIONS (2)
  - COMPLETED SUICIDE [None]
  - INTENTIONAL OVERDOSE [None]
